FAERS Safety Report 7299647-7 (Version None)
Quarter: 2011Q1

REPORT INFORMATION
  Report Type: 
  Country: None (occurrence: None)
  Receive Date: 20110208
  Receipt Date: 20101207
  Transmission Date: 20110831
  Serious: Yes (Hospitalization)
  Sender: FDA-Public Use
  Company Number: BE-021537

PATIENT
  Age: 72 Year
  Sex: Male

DRUGS (2)
  1. (OFATUMUMAB) [Suspect]
     Indication: CHRONIC LYMPHOCYTIC LEUKAEMIA
     Dosage: 300 MG INTRAVENOUS
     Route: 042
     Dates: start: 20101110
  2. (CHLORAMBUCIL) [Suspect]
     Indication: CHRONIC LYMPHOCYTIC LEUKAEMIA
     Dosage: 10 MG/M2 ON DAYS 1-7 EVERY 28 DAYS ORAL
     Route: 048
     Dates: start: 20101110

REACTIONS (2)
  - INFLAMMATION [None]
  - FLANK PAIN [None]
